FAERS Safety Report 4789769-4 (Version None)
Quarter: 2005Q3

REPORT INFORMATION
  Report Type: 
  Country: None (occurrence: None)
  Receive Date: 20050914
  Receipt Date: 20040921
  Transmission Date: 20060218
  Serious: Yes (Hospitalization)
  Sender: FDA-Public Use
  Company Number: 163-20785-04090536

PATIENT
  Age: 52 Year
  Sex: Male

DRUGS (5)
  1. THALOMID [Suspect]
     Indication: MULTIPLE MYELOMA
     Dosage: 50 MG, DAILY, ORAL
     Route: 048
     Dates: start: 20040701, end: 20040818
  2. MALPHALAN (MELPHALAN) [Suspect]
     Indication: MULTIPLE MYELOMA
     Dosage: 390 MG, DAILY, INTRAVENOUS
     Route: 042
     Dates: start: 20040609, end: 20040609
  3. DEXAMETHASONE [Suspect]
     Indication: MULTIPLE MYELOMA
     Dosage: 20 MG, DAILY, ORAL
     Route: 048
     Dates: start: 20040701, end: 20040704
  4. DEXAMETHASONE [Suspect]
     Indication: MULTIPLE MYELOMA
     Dosage: 20 MG, DAILY, ORAL
     Route: 048
     Dates: start: 20040722, end: 20040725
  5. DEXAMETHASONE [Suspect]
     Indication: MULTIPLE MYELOMA
     Dosage: 20 MG, DAILY, ORAL
     Route: 048
     Dates: start: 20040812, end: 20040815

REACTIONS (4)
  - CHILLS [None]
  - COUGH [None]
  - PNEUMONIA CYTOMEGALOVIRAL [None]
  - PYREXIA [None]
